FAERS Safety Report 6121769-4 (Version None)
Quarter: 2009Q1

REPORT INFORMATION
  Report Type: 
  Country: None (occurrence: None)
  Receive Date: 20090317
  Receipt Date: 20090309
  Transmission Date: 20090719
  Serious: Yes (Death)
  Sender: FDA-Public Use
  Company Number: US-B.I. PHARMACEUTICALS,INC./RIDGEFIELD-2006-BP-00828BP

PATIENT
  Sex: Female

DRUGS (2)
  1. ATROVENT HFA [Suspect]
     Indication: CHRONIC OBSTRUCTIVE PULMONARY DISEASE
     Dosage: 272MCG
     Route: 055
     Dates: start: 20060119
  2. ATROVENT HFA [Suspect]
     Indication: EMPHYSEMA

REACTIONS (4)
  - COUGH [None]
  - DEATH [None]
  - DYSGEUSIA [None]
  - PLEURITIC PAIN [None]
